FAERS Safety Report 15605284 (Version 2)
Quarter: 2021Q1

REPORT INFORMATION
  Report Type: Spontaneous
  Country: FR (occurrence: FR)
  Receive Date: 20181112
  Receipt Date: 20210212
  Transmission Date: 20210419
  Serious: Yes (Death, Other)
  Sender: FDA-Public Use
  Company Number: FR-SUN PHARMACEUTICAL INDUSTRIES LTD-2018RR-190646

PATIENT
  Age: 20 Year
  Sex: Female

DRUGS (3)
  1. TRIMEBUTINE [Suspect]
     Active Substance: TRIMEBUTINE
     Indication: PRODUCT USED FOR UNKNOWN INDICATION
     Dosage: ()IN TOTAL
     Route: 048
  2. TRAMADOL. [Suspect]
     Active Substance: TRAMADOL
     Indication: OVERDOSE
     Dosage: ^MASSIVE^ DOSE () ; IN TOTAL
     Route: 048
  3. TIAPROFENIC ACID [Suspect]
     Active Substance: TIAPROFENIC ACID
     Indication: PRODUCT USED FOR UNKNOWN INDICATION
     Dosage: ()IN TOTAL
     Route: 048

REACTIONS (18)
  - Neurological symptom [Unknown]
  - Constipation [Unknown]
  - Hallucination [Unknown]
  - Nausea [Unknown]
  - Intentional overdose [Fatal]
  - Completed suicide [Fatal]
  - Suicidal ideation [Fatal]
  - Seizure [Unknown]
  - Confusional state [Unknown]
  - Psychiatric symptom [Fatal]
  - Gastrointestinal disorder [Unknown]
  - Vomiting [Unknown]
  - Altered state of consciousness [Unknown]
  - Dyspepsia [Fatal]
  - Suicide attempt [Unknown]
  - Dizziness [Unknown]
  - Coma [Unknown]
  - Somnolence [Unknown]
